FAERS Safety Report 20332947 (Version 1)
Quarter: 2022Q1

REPORT INFORMATION
  Report Type: Spontaneous
  Country: US (occurrence: US)
  Receive Date: 20220113
  Receipt Date: 20220113
  Transmission Date: 20220423
  Serious: No
  Sender: FDA-Public Use
  Company Number: US-009507513-2112USA010096

PATIENT
  Age: 79 Year
  Sex: Male

DRUGS (8)
  1. VERQUVO [Suspect]
     Active Substance: VERICIGUAT
     Indication: Cardiac failure
     Dosage: 5 GRAM, ONCE A DAY
     Route: 048
     Dates: start: 202109
  2. ENTRESTO [Concomitant]
     Active Substance: SACUBITRIL\VALSARTAN
  3. SOTALOL [Concomitant]
     Active Substance: SOTALOL
  4. CARVEDILOL [Concomitant]
     Active Substance: CARVEDILOL
  5. RANOLAZINE [Concomitant]
     Active Substance: RANOLAZINE
  6. PLAVIX [Concomitant]
     Active Substance: CLOPIDOGREL BISULFATE
  7. TORSEMIDE [Concomitant]
     Active Substance: TORSEMIDE
  8. LIPITOR [Concomitant]
     Active Substance: ATORVASTATIN CALCIUM

REACTIONS (3)
  - Product dose omission issue [Unknown]
  - Product availability issue [Unknown]
  - No adverse event [Unknown]

NARRATIVE: CASE EVENT DATE: 20211227
